FAERS Safety Report 4778554-5 (Version None)
Quarter: 2005Q3

REPORT INFORMATION
  Report Type: 
  Country: None (occurrence: None)
  Receive Date: 20050922
  Receipt Date: 20050909
  Transmission Date: 20060218
  Serious: Yes (Hospitalization, Other)
  Sender: FDA-Public Use
  Company Number: 2005051143

PATIENT
  Sex: Female

DRUGS (3)
  1. DETROL [Suspect]
     Indication: ILL-DEFINED DISORDER
  2. DETROL LA [Suspect]
     Indication: ILL-DEFINED DISORDER
  3. DITROPAN [Suspect]
     Indication: ILL-DEFINED DISORDER

REACTIONS (6)
  - DRUG EFFECT DECREASED [None]
  - DRY MOUTH [None]
  - HEPATIC NEOPLASM MALIGNANT [None]
  - LUNG NEOPLASM MALIGNANT [None]
  - METASTASES TO SPINE [None]
  - URINARY INCONTINENCE [None]
